FAERS Safety Report 8372476-9 (Version None)
Quarter: 2012Q2

REPORT INFORMATION
  Report Type: 
  Country: None (occurrence: None)
  Receive Date: 20120521
  Receipt Date: 20120509
  Transmission Date: 20120825
  Serious: Yes (Hospitalization)
  Sender: FDA-Public Use
  Company Number: US-JNJFOC-20120510646

PATIENT
  Sex: Male
  Weight: 74.7 kg

DRUGS (5)
  1. E VITAMIN [Concomitant]
  2. REMICADE [Suspect]
     Indication: INFLAMMATORY BOWEL DISEASE
     Route: 042
  3. IRON [Concomitant]
  4. PREDNISONE [Concomitant]
  5. URSODIOL [Concomitant]

REACTIONS (1)
  - IRON DEFICIENCY ANAEMIA [None]
